FAERS Safety Report 5204469-4 (Version None)
Quarter: 2007Q1

REPORT INFORMATION
  Report Type: 
  Country: None (occurrence: None)
  Receive Date: 20070110
  Receipt Date: 20060829
  Transmission Date: 20070707
  Serious: No
  Sender: FDA-Public Use
  Company Number: US-BRISTOL-MYERS SQUIBB COMPANY-13336730

PATIENT
  Age: 46 Year
  Sex: Male
  Weight: 119 kg

DRUGS (8)
  1. ABILIFY [Suspect]
     Indication: SCHIZOPHRENIA
     Dates: start: 20060101
  2. ABILIFY [Suspect]
     Indication: SCHIZOAFFECTIVE DISORDER
     Dates: start: 20060101
  3. ABILIFY [Suspect]
     Indication: BIPOLAR DISORDER
     Dates: start: 20060101
  4. DEPAKOTE [Concomitant]
  5. NAVANE [Concomitant]
  6. COGENTIN [Concomitant]
  7. COUMADIN [Concomitant]
  8. PRILOSEC [Concomitant]

REACTIONS (1)
  - TARDIVE DYSKINESIA [None]
